FAERS Safety Report 4507920-8 (Version None)
Quarter: 2004Q4

REPORT INFORMATION
  Report Type: 
  Country: None (occurrence: None)
  Receive Date: 20041123
  Receipt Date: 20041119
  Transmission Date: 20050328
  Serious: Yes (Disabling)
  Sender: FDA-Public Use
  Company Number: DE-ROCHE-386627

PATIENT
  Age: 37 Year
  Sex: Male
  Weight: 89 kg

DRUGS (2)
  1. PEG-INTERFERON ALFA 2A (RO 25-8310) [Suspect]
     Route: 058
     Dates: start: 20040827, end: 20041118
  2. RIBAVIRIN [Suspect]
     Route: 048
     Dates: start: 20040827, end: 20041118

REACTIONS (3)
  - RETINAL INFARCTION [None]
  - VASCULITIS [None]
  - VISUAL FIELD DEFECT [None]
